FAERS Safety Report 9496856 (Version 1)
Quarter: 2013Q3

REPORT INFORMATION
  Report Type: Spontaneous
  Country: US (occurrence: US)
  Receive Date: 20130904
  Receipt Date: 20130904
  Transmission Date: 20140515
  Serious: Yes (Other)
  Sender: FDA-Public Use
  Company Number: US-PFIZER INC-2013251046

PATIENT
  Sex: Female
  Weight: 81.63 kg

DRUGS (2)
  1. LIPITOR [Suspect]
     Indication: BLOOD CHOLESTEROL INCREASED
     Dosage: 40MG DAILY
     Route: 048
     Dates: start: 2005
  2. EXFORGE HCT [Concomitant]
     Indication: HYPERTENSION
     Dosage: [10 MG AMLODIPINE]/ [320 MG VALSARTAN]/ [25 MG HYDROCHLOROTHIAZIDE], DAILY
     Route: 048

REACTIONS (1)
  - Type 2 diabetes mellitus [Unknown]
